FAERS Safety Report 25684666 (Version 1)
Quarter: 2025Q3

REPORT INFORMATION
  Report Type: Spontaneous
  Country: QA (occurrence: QA)
  Receive Date: 20250815
  Receipt Date: 20250815
  Transmission Date: 20251020
  Serious: Yes (Other)
  Sender: STRIDES
  Company Number: QA-STRIDES ARCOLAB LIMITED-2025SP010186

PATIENT
  Age: 25 Year
  Sex: Female

DRUGS (7)
  1. PREDNISONE [Suspect]
     Active Substance: PREDNISONE
     Indication: Aplasia pure red cell
     Route: 065
  2. PREDNISONE [Suspect]
     Active Substance: PREDNISONE
     Route: 065
  3. PREDNISONE [Suspect]
     Active Substance: PREDNISONE
     Route: 065
  4. PREDNISONE [Suspect]
     Active Substance: PREDNISONE
     Route: 065
  5. INSULIN NOS [Concomitant]
     Active Substance: INSULIN NOS
     Indication: Diabetes mellitus
     Route: 065
  6. INSULIN NOS [Concomitant]
     Active Substance: INSULIN NOS
     Indication: Autoimmune disorder
  7. RITUXIMAB [Concomitant]
     Active Substance: RITUXIMAB
     Indication: Aplasia pure red cell
     Route: 065

REACTIONS (3)
  - Rebound effect [Unknown]
  - Drug effect less than expected [Unknown]
  - Off label use [Unknown]
